FAERS Safety Report 7453842 (Version 3)
Quarter: 2014Q1

REPORT INFORMATION
  Report Type: Spontaneous
  Country: US (occurrence: US)
  Receive Date: 20100706
  Receipt Date: 20140129
  Transmission Date: 20141002
  Serious: Yes (Hospitalization)
  Sender: FDA-Public Use
  Company Number: US-BAYER-201026601NA

PATIENT
  Age: 28 Year
  Sex: Female
  Weight: 151.93 kg

DRUGS (1)
  1. YAZ [Suspect]
     Indication: PRODUCT USED FOR UNKNOWN INDICATION
     Route: 048
     Dates: start: 2006, end: 200905

REACTIONS (2)
  - Cholelithiasis [None]
  - Hepatic enzyme increased [None]
